FAERS Safety Report 6929290-8 (Version None)
Quarter: 2010Q3

REPORT INFORMATION
  Report Type: 
  Country: None (occurrence: None)
  Receive Date: 20100817
  Receipt Date: 20100812
  Transmission Date: 20110219
  Serious: Yes (Hospitalization)
  Sender: FDA-Public Use
  Company Number: MX-BRISTOL-MYERS SQUIBB COMPANY-15188667

PATIENT
  Age: 58 Year
  Sex: Male

DRUGS (1)
  1. ONGLYZA [Suspect]
     Indication: METABOLIC DISORDER
     Dates: start: 20100101

REACTIONS (3)
  - ACUTE LYMPHOCYTIC LEUKAEMIA [None]
  - RESPIRATORY TRACT INFECTION [None]
  - UPPER GASTROINTESTINAL HAEMORRHAGE [None]
